FAERS Safety Report 13669178 (Version 1)
Quarter: 2017Q2

REPORT INFORMATION
  Report Type: Spontaneous
  Country: CN (occurrence: CN)
  Receive Date: 20170620
  Receipt Date: 20170620
  Transmission Date: 20170830
  Serious: Yes (Other)
  Sender: FDA-Public Use
  Company Number: CN-PFIZER INC-2017264045

PATIENT
  Age: 70 Year
  Sex: Male

DRUGS (2)
  1. BETALOK [Concomitant]
     Active Substance: METOPROLOL SUCCINATE
     Indication: HYPERTENSION
     Dosage: 25 MG, 2X/DAY, AFTER GETTING UP IN THE AFTERNOON
  2. NORVASC [Suspect]
     Active Substance: AMLODIPINE BESYLATE
     Indication: HYPERTENSION
     Dosage: 5 MG, 1X/DAY, AFTER GETTING UP
     Route: 048

REACTIONS (3)
  - Blood pressure inadequately controlled [Unknown]
  - Ischaemic stroke [Unknown]
  - Coronary artery disease [Unknown]
